FAERS Safety Report 5799912-6 (Version None)
Quarter: 2008Q3

REPORT INFORMATION
  Report Type: 
  Country: None (occurrence: None)
  Receive Date: 20080703
  Receipt Date: 20080620
  Transmission Date: 20090109
  Serious: Yes (Disabling, Other)
  Sender: FDA-Public Use
  Company Number: GB-AMGEN-UK256714

PATIENT
  Sex: Male

DRUGS (5)
  1. ARANESP [Suspect]
     Indication: MYELODYSPLASTIC SYNDROME
     Route: 058
     Dates: start: 20070726, end: 20071011
  2. ASPIRIN [Concomitant]
     Route: 048
     Dates: start: 20051219
  3. PROPRANOLOL [Concomitant]
     Route: 048
     Dates: start: 20060615
  4. FOLIC ACID [Concomitant]
     Route: 048
     Dates: start: 20061005
  5. OMEPRAZOLE [Concomitant]
     Route: 048
     Dates: start: 20070212

REACTIONS (1)
  - APLASIA PURE RED CELL [None]
